FAERS Safety Report 4521831-3 (Version None)
Quarter: 2004Q4

REPORT INFORMATION
  Report Type: 
  Country: None (occurrence: None)
  Receive Date: 20041209
  Receipt Date: 20041202
  Transmission Date: 20050328
  Serious: Yes (Other)
  Sender: FDA-Public Use
  Company Number: US-BRISTOL-MYERS SQUIBB COMPANY-12782678

PATIENT

DRUGS (11)
  1. IFOSFAMIDE [Suspect]
     Route: 042
  2. MESNA [Suspect]
  3. CISPLATIN [Suspect]
     Route: 042
  4. CYCLOPHOSPHAMIDE [Suspect]
     Indication: BONE MARROW TRANSPLANT
  5. ETOPOSIDE [Suspect]
     Indication: BONE MARROW TRANSPLANT
  6. CARMUSTINE [Suspect]
     Indication: BONE MARROW TRANSPLANT
  7. MITOXANTRONE [Suspect]
     Route: 042
  8. ARA-C [Suspect]
     Route: 042
  9. METHYLPREDNISOLONE [Suspect]
     Route: 042
  10. STEM CELL TRANSPLANTATION [Suspect]
  11. RADIATION THERAPY [Suspect]

REACTIONS (8)
  - ATAXIA [None]
  - DEAFNESS [None]
  - DISORIENTATION [None]
  - INFECTION [None]
  - MUCOSAL INFLAMMATION [None]
  - NEUTROPENIA [None]
  - PARAESTHESIA [None]
  - THROMBOCYTOPENIA [None]
